FAERS Safety Report 18864810 (Version 1)
Quarter: 2021Q1

REPORT INFORMATION
  Report Type: Spontaneous
  Country: US (occurrence: US)
  Receive Date: 20210208
  Receipt Date: 20210208
  Transmission Date: 20210420
  Serious: Yes (Other)
  Sender: FDA-Public Use
  Company Number: None

PATIENT
  Sex: Female

DRUGS (1)
  1. MAVENCLAD [Suspect]
     Active Substance: CLADRIBINE
     Indication: MULTIPLE SCLEROSIS
     Dosage: 10 MG DAILY PER PACKAGE DIRECTIONS ? 2 TABLETS DAILY DAYS 1?2, 1 TABLET DAILY DAYS 3?5?
     Route: 048
     Dates: start: 20210117

REACTIONS (3)
  - Pneumonia [None]
  - Chronic obstructive pulmonary disease [None]
  - Multiple sclerosis relapse [None]
